FAERS Safety Report 8151568-3 (Version None)
Quarter: 2012Q1

REPORT INFORMATION
  Report Type: 
  Country: None (occurrence: None)
  Receive Date: 20120220
  Receipt Date: 20120207
  Transmission Date: 20120608
  Serious: Yes (Other)
  Sender: FDA-Public Use
  Company Number: US-ROCHE-1041268

PATIENT
  Sex: Female

DRUGS (3)
  1. HERCEPTIN [Suspect]
     Indication: BREAST CANCER METASTATIC
     Dosage: OVER 90 MIN ON DAY 1 OF WEEK 1 ONLY
     Route: 042
     Dates: start: 20030714
  2. HERCEPTIN [Suspect]
     Dosage: OVER 30 MIN ON DAY 1 QW, STARTING ON WEEK 2
     Route: 042
  3. GEFITINIB [Suspect]
     Indication: BREAST CANCER METASTATIC
     Route: 048
     Dates: start: 20030714

REACTIONS (2)
  - CONJUNCTIVITIS [None]
  - PHOTOPHOBIA [None]
